FAERS Safety Report 7220477-6 (Version None)
Quarter: 2011Q1

REPORT INFORMATION
  Report Type: 
  Country: None (occurrence: None)
  Receive Date: 20110111
  Receipt Date: 20091206
  Transmission Date: 20110831
  Serious: Yes (Hospitalization)
  Sender: FDA-Public Use
  Company Number: GB-NAPPMUNDI-GBR-2009-0005409

PATIENT
  Sex: Male

DRUGS (1)
  1. TARGINACT 10MG/5MG [Suspect]
     Indication: PRODUCT USED FOR UNKNOWN INDICATION
     Dosage: 10/5
     Route: 048

REACTIONS (2)
  - CARDIAC FAILURE [None]
  - ACUTE MYOCARDIAL INFARCTION [None]
